FAERS Safety Report 4731023-0 (Version None)
Quarter: 2005Q3

REPORT INFORMATION
  Report Type: 
  Country: None (occurrence: None)
  Receive Date: 20050719
  Receipt Date: 20041220
  Transmission Date: 20060218
  Serious: Yes (Other)
  Sender: FDA-Public Use
  Company Number: 2004BI001938

PATIENT
  Age: 47 Year
  Sex: Male
  Weight: 90.2658 kg

DRUGS (13)
  1. AVONEX [Suspect]
     Indication: MULTIPLE SCLEROSIS
     Dosage: 30 UG;QW;IM
     Route: 030
     Dates: start: 19980101, end: 20030101
  2. AVONEX [Suspect]
     Indication: MULTIPLE SCLEROSIS
     Dosage: 30 UG;QW;IM
     Route: 030
     Dates: start: 20030101
  3. COUMADIN [Concomitant]
  4. BACLOFEN [Concomitant]
  5. VALTREX [Concomitant]
  6. MOBIC [Concomitant]
  7. FLEXERIL [Concomitant]
  8. VALIUM [Concomitant]
  9. CLONAZEPAM [Concomitant]
  10. SINEMET [Concomitant]
  11. DARVOCET [Concomitant]
  12. PROPECIA [Concomitant]
  13. DITROPAN [Concomitant]

REACTIONS (3)
  - CARDIAC FAILURE CONGESTIVE [None]
  - DEEP VEIN THROMBOSIS [None]
  - MUSCULAR WEAKNESS [None]
